FAERS Safety Report 17261421 (Version 5)
Quarter: 2023Q4

REPORT INFORMATION
  Report Type: Report from Study
  Country: US (occurrence: US)
  Receive Date: 20200113
  Receipt Date: 20231228
  Transmission Date: 20240110
  Serious: Yes (Hospitalization, Disabling, Other)
  Sender: FDA-Public Use
  Company Number: US-SA-2016SA019886

PATIENT
  Age: 66 Year
  Sex: Male

DRUGS (2)
  1. ALEMTUZUMAB [Suspect]
     Active Substance: ALEMTUZUMAB
     Indication: Multiple sclerosis
     Dosage: 12 MG,QD
     Route: 041
     Dates: start: 20160111, end: 20160115
  2. ACYCLOVIR [Concomitant]
     Active Substance: ACYCLOVIR
     Indication: Immunosuppression
     Dosage: UNK UNK, BID
     Route: 065

REACTIONS (15)
  - Sepsis [Unknown]
  - Neoplasm malignant [Unknown]
  - Cerebrovascular accident [Unknown]
  - Autoimmune disorder [Unknown]
  - Intervertebral disc protrusion [Not Recovered/Not Resolved]
  - Condition aggravated [Not Recovered/Not Resolved]
  - Spinal pain [Not Recovered/Not Resolved]
  - Discomfort [Not Recovered/Not Resolved]
  - Hypoaesthesia [Not Recovered/Not Resolved]
  - Multiple sclerosis relapse [Unknown]
  - Speech disorder [Not Recovered/Not Resolved]
  - Gait disturbance [Unknown]
  - Feeling abnormal [Recovered/Resolved]
  - Memory impairment [Not Recovered/Not Resolved]
  - Confusional state [Not Recovered/Not Resolved]

NARRATIVE: CASE EVENT DATE: 20160101
